FAERS Safety Report 7384502-4 (Version None)
Quarter: 2011Q1

REPORT INFORMATION
  Report Type: 
  Country: None (occurrence: None)
  Receive Date: 20110330
  Receipt Date: 20110323
  Transmission Date: 20110831
  Serious: Yes (Other)
  Sender: FDA-Public Use
  Company Number: GB-PFIZER INC-2011065352

PATIENT
  Age: 64 Year
  Sex: Male

DRUGS (5)
  1. LINEZOLID [Suspect]
     Indication: POST PROCEDURAL INFECTION
     Dosage: 600 MG, 2X/DAY
     Route: 048
     Dates: start: 20110228, end: 20110308
  2. DICLOFENAC [Concomitant]
     Indication: OSTEOARTHRITIS
     Dosage: 50 MG, 3X/DAY
     Route: 048
     Dates: start: 20110106
  3. ZOPICLONE [Concomitant]
     Indication: INSOMNIA
     Dosage: 1 DF, 1X/DAY
     Route: 048
     Dates: start: 20110304
  4. ACETAMINOPHEN AND CODEINE PHOSPHATE [Concomitant]
     Indication: OSTEOARTHRITIS
     Dosage: UNK
     Route: 048
     Dates: start: 20101123
  5. SENNA [Concomitant]
     Indication: CONSTIPATION
     Dosage: 7.5 MG, 2X/DAY
     Route: 048
     Dates: start: 20101123

REACTIONS (6)
  - SWELLING FACE [None]
  - SKIN REACTION [None]
  - BURNING SENSATION [None]
  - INSOMNIA [None]
  - DYSGEUSIA [None]
  - LOCAL SWELLING [None]
